FAERS Safety Report 8357725-5 (Version None)
Quarter: 2012Q2

REPORT INFORMATION
  Report Type: 
  Country: None (occurrence: None)
  Receive Date: 20120514
  Receipt Date: 20120507
  Transmission Date: 20120825
  Serious: Yes (Other)
  Sender: FDA-Public Use
  Company Number: FR-UCBSA-056919

PATIENT
  Sex: Male

DRUGS (3)
  1. CIMZIA [Suspect]
     Route: 058
     Dates: start: 20110101, end: 20110101
  2. ADALIMUMAB [Concomitant]
  3. ADALIMUMAB [Concomitant]
     Dates: start: 20070101, end: 20110101

REACTIONS (1)
  - RENAL CANCER [None]
